FAERS Safety Report 12519993 (Version 3)
Quarter: 2016Q3

REPORT INFORMATION
  Report Type: Spontaneous
  Country: US (occurrence: US)
  Receive Date: 20160630
  Receipt Date: 20160822
  Transmission Date: 20161109
  Serious: No
  Sender: FDA-Public Use
  Company Number: US-PFIZER INC-2016291516

PATIENT
  Age: 43 Year
  Sex: Female
  Weight: 43 kg

DRUGS (16)
  1. ADVIL [Suspect]
     Active Substance: IBUPROFEN
     Indication: EAR PAIN
  2. ADVIL [Suspect]
     Active Substance: IBUPROFEN
     Indication: HEADACHE
  3. TYLENOL WITH CODEINE [Concomitant]
     Active Substance: ACETAMINOPHEN\CODEINE PHOSPHATE
     Indication: ROOT CANAL INFECTION
     Dosage: UNK (1/2 PILL AFTER AND BEFORE SURGERY, 3X DAILY)
     Dates: start: 1989, end: 2015
  4. ADVIL [Suspect]
     Active Substance: IBUPROFEN
     Indication: MENSTRUAL DISORDER
     Dosage: 2 (10 MG) TWICE PER DAY
     Dates: start: 1989, end: 2014
  5. ADVIL [Suspect]
     Active Substance: IBUPROFEN
     Indication: TENDONITIS
  6. ALEVE [Concomitant]
     Active Substance: NAPROXEN SODIUM
     Indication: HEADACHE
  7. ADVIL [Suspect]
     Active Substance: IBUPROFEN
     Indication: OSTEOPOROSIS
  8. TYLENOL EXTRA STRENGTH [Concomitant]
     Active Substance: ACETAMINOPHEN
     Indication: HEADACHE
  9. ADVIL [Suspect]
     Active Substance: IBUPROFEN
     Indication: NEUROMA
  10. TYLENOL EXTRA STRENGTH [Concomitant]
     Active Substance: ACETAMINOPHEN
     Indication: OSTEOPOROSIS
     Dosage: 500 MG, AS NEEDED (2 X DAILY USUALLY)
  11. TYLENOL EXTRA STRENGTH [Concomitant]
     Active Substance: ACETAMINOPHEN
     Indication: MYALGIA
  12. ALEVE [Concomitant]
     Active Substance: NAPROXEN SODIUM
     Indication: EAR PAIN
  13. ADVIL [Suspect]
     Active Substance: IBUPROFEN
     Indication: BACK DISORDER
     Dosage: 200 MG, UNK
     Dates: start: 1989, end: 2014
  14. COUMADIN [Suspect]
     Active Substance: WARFARIN SODIUM
     Dosage: UNK
  15. ALEVE [Concomitant]
     Active Substance: NAPROXEN SODIUM
     Indication: MENSTRUAL DISORDER
     Dosage: 2 DF, DAILY (ON BAD DAYS 3)
     Dates: start: 1989, end: 2013
  16. ALEVE [Concomitant]
     Active Substance: NAPROXEN SODIUM
     Indication: BACK DISORDER

REACTIONS (4)
  - Abdominal pain upper [Recovered/Resolved]
  - Mouth haemorrhage [Recovered/Resolved]
  - Intentional product use issue [Recovered/Resolved]
  - Product use issue [Recovered/Resolved]

NARRATIVE: CASE EVENT DATE: 1989
